FAERS Safety Report 4744195-9 (Version None)
Quarter: 2005Q3

REPORT INFORMATION
  Report Type: 
  Country: None (occurrence: None)
  Receive Date: 20050809
  Receipt Date: 20050801
  Transmission Date: 20060218
  Serious: Yes (Hospitalization)
  Sender: FDA-Public Use
  Company Number: 2005S1000153

PATIENT
  Age: 40 Year
  Sex: Female
  Weight: 63 kg

DRUGS (7)
  1. CUBICIN [Suspect]
     Indication: STAPHYLOCOCCAL OSTEOMYELITIS
     Dosage: 3 MG/KG; Q24H; IV
     Route: 042
  2. SUMATRIPTAN SUCCINATE [Concomitant]
     Indication: JOINT PROSTHESIS USER
  3. IRON [Concomitant]
  4. CALCIUM GLUCONATE [Concomitant]
  5. ALBUTEROL [Concomitant]
  6. PREVACID [Concomitant]
  7. ORAMORPH SR [Concomitant]

REACTIONS (7)
  - CHEST PAIN [None]
  - CONDITION AGGRAVATED [None]
  - CONFUSIONAL STATE [None]
  - FATIGUE [None]
  - HYPERHIDROSIS [None]
  - SYSTEMIC LUPUS ERYTHEMATOSUS [None]
  - TACHYCARDIA [None]
